FAERS Safety Report 7329509-8 (Version None)
Quarter: 2011Q1

REPORT INFORMATION
  Report Type: 
  Country: None (occurrence: None)
  Receive Date: 20110303
  Receipt Date: 20110228
  Transmission Date: 20110831
  Serious: Yes (Other)
  Sender: FDA-Public Use
  Company Number: US-PFIZER INC-2011044082

PATIENT
  Sex: Female

DRUGS (3)
  1. MULTI-VITAMINS [Concomitant]
     Dosage: UNK
  2. FISH OIL [Concomitant]
     Dosage: UNK
  3. DILANTIN [Suspect]
     Indication: CONVULSION
     Dosage: UNK
     Route: 048
     Dates: start: 19930101

REACTIONS (1)
  - TYPE 2 DIABETES MELLITUS [None]
